FAERS Safety Report 8584674-X (Version None)
Quarter: 2012Q3

REPORT INFORMATION
  Report Type: 
  Country: None (occurrence: None)
  Receive Date: 20120810
  Receipt Date: 20070226
  Transmission Date: 20120928
  Serious: Yes (Other)
  Sender: FDA-Public Use
  Company Number: CO-PFIZER INC-2012191723

PATIENT
  Age: 62 Year
  Sex: Male

DRUGS (4)
  1. QUINAPRIL AND HYDROCHLOROTHIAZIDE [Suspect]
     Indication: HYPERTENSION
     Dosage: 20/12.5 MG, 1X/DAY
  2. LIPITOR [Suspect]
     Indication: DYSLIPIDAEMIA
     Dosage: 10 MG, 1X/DAY
  3. NORVASC [Suspect]
     Dosage: 10 MG, 1X/DAY
  4. NORVASC [Suspect]
     Indication: HYPERTENSION
     Dosage: 5 MG, 2X/DAY

REACTIONS (4)
  - MUSCLE SPASMS [None]
  - HYPERTENSIVE EMERGENCY [None]
  - FEELING HOT [None]
  - OEDEMA [None]
